FAERS Safety Report 10551951 (Version 6)
Quarter: 2015Q1

REPORT INFORMATION
  Report Type: Spontaneous
  Country: BE (occurrence: BE)
  Receive Date: 20141029
  Receipt Date: 20150219
  Transmission Date: 20150720
  Serious: Yes (Hospitalization, Other)
  Sender: FDA-Public Use
  Company Number: BE-PFIZER INC-2014294635

PATIENT
  Age: 77 Year
  Sex: Female

DRUGS (12)
  1. XARELTO [Suspect]
     Active Substance: RIVAROXABAN
  2. ZANTAC [Concomitant]
     Active Substance: RANITIDINE HYDROCHLORIDE
     Dosage: 300 MG, UNK
     Route: 048
     Dates: start: 200405
  3. NOBITEN [Concomitant]
     Dosage: 5 MG, UNK
     Route: 048
     Dates: start: 201303
  4. COVERSYL [Concomitant]
     Active Substance: PERINDOPRIL
     Dosage: 10 MG, UNK
     Route: 048
     Dates: start: 200405
  5. MEDROL [Suspect]
     Active Substance: METHYLPREDNISOLONE
     Dosage: 2 MG, 1X/DAY
     Route: 048
     Dates: end: 20150106
  6. GAMBARAN [Suspect]
     Active Substance: NABUMETONE
  7. MEDROL [Suspect]
     Active Substance: METHYLPREDNISOLONE
     Indication: PEMPHIGOID
     Dosage: 32 MG, 1X/DAY
     Route: 048
     Dates: start: 201302, end: 20150106
  8. MEDROL [Suspect]
     Active Substance: METHYLPREDNISOLONE
     Indication: PRURIGO
     Dosage: 4 MG, 1X/DAY
     Route: 048
  9. MEDROL [Suspect]
     Active Substance: METHYLPREDNISOLONE
     Dosage: 8 MG, 1X/DAY
     Route: 048
  10. HALCION [Concomitant]
     Active Substance: TRIAZOLAM
     Indication: INSOMNIA
     Dosage: 1X/DAY
     Route: 048
     Dates: start: 201303
  11. ASAFLOW [Concomitant]
     Active Substance: ASPIRIN
     Dosage: 80 MG, UNK
     Route: 048
     Dates: start: 200405
  12. ALDACTONE [Concomitant]
     Active Substance: SPIRONOLACTONE
     Dosage: 50 MG, UNK
     Route: 048
     Dates: start: 200405

REACTIONS (15)
  - Post herpetic neuralgia [Recovered/Resolved]
  - Hyperglycaemia [Unknown]
  - Skin wrinkling [Not Recovered/Not Resolved]
  - Oedema [Not Recovered/Not Resolved]
  - Skin atrophy [Not Recovered/Not Resolved]
  - Thrombosis [Unknown]
  - Drug ineffective [Recovered/Resolved]
  - Dyspnoea [Not Recovered/Not Resolved]
  - Cataract [Unknown]
  - Skin discolouration [Not Recovered/Not Resolved]
  - Depressed mood [Not Recovered/Not Resolved]
  - Urticaria [Unknown]
  - Nervousness [Not Recovered/Not Resolved]
  - Herpes zoster [Not Recovered/Not Resolved]
  - Blister [Not Recovered/Not Resolved]

NARRATIVE: CASE EVENT DATE: 2013
